FAERS Safety Report 18444498 (Version 1)
Quarter: 2020Q4

REPORT INFORMATION
  Report Type: Spontaneous
  Country: MX (occurrence: MX)
  Receive Date: 20201030
  Receipt Date: 20201030
  Transmission Date: 20210114
  Serious: Yes (Other)
  Sender: FDA-Public Use
  Company Number: MX-ALKEM LABORATORIES LIMITED-MX-ALKEM-2020-07339

PATIENT
  Age: 10 Year
  Sex: Male

DRUGS (26)
  1. QUETIAPINE FUMARATE. [Suspect]
     Active Substance: QUETIAPINE FUMARATE
     Indication: ATONIC SEIZURES
     Dosage: UNK
     Route: 048
  2. LEVETIRACETAM. [Suspect]
     Active Substance: LEVETIRACETAM
     Indication: INFANTILE SPASMS
  3. ETHYL LOFLAZEPATE [Suspect]
     Active Substance: ETHYL LOFLAZEPATE
     Indication: ATONIC SEIZURES
     Dosage: UNK
     Route: 065
  4. ATOMOXETINE. [Concomitant]
     Active Substance: ATOMOXETINE HYDROCHLORIDE
     Indication: ATONIC SEIZURES
     Dosage: UNK
     Route: 065
  5. SERTRALINE [Concomitant]
     Active Substance: SERTRALINE HYDROCHLORIDE
     Indication: ATONIC SEIZURES
     Dosage: UNK
     Route: 065
  6. MIRTAZAPINE. [Suspect]
     Active Substance: MIRTAZAPINE
     Indication: ATONIC SEIZURES
     Dosage: UNK
     Route: 065
  7. MIRTAZAPINE. [Suspect]
     Active Substance: MIRTAZAPINE
     Indication: INFANTILE SPASMS
  8. ETHYL LOFLAZEPATE [Suspect]
     Active Substance: ETHYL LOFLAZEPATE
     Indication: INFANTILE SPASMS
  9. OLANZAPINE. [Concomitant]
     Active Substance: OLANZAPINE
     Indication: INFANTILE SPASMS
  10. PHENOBARBITAL. [Concomitant]
     Active Substance: PHENOBARBITAL
     Indication: ATONIC SEIZURES
     Dosage: UNK
     Route: 065
  11. LEVETIRACETAM. [Suspect]
     Active Substance: LEVETIRACETAM
     Indication: ATONIC SEIZURES
     Dosage: UNK
     Route: 065
  12. PHENOBARBITAL. [Concomitant]
     Active Substance: PHENOBARBITAL
     Indication: INFANTILE SPASMS
  13. HALOPERIDOL. [Concomitant]
     Active Substance: HALOPERIDOL
     Indication: INFANTILE SPASMS
  14. TOPIRAMATE. [Concomitant]
     Active Substance: TOPIRAMATE
     Indication: ATONIC SEIZURES
     Dosage: UNK
     Route: 065
  15. PHENYTOIN. [Concomitant]
     Active Substance: PHENYTOIN
     Indication: INFANTILE SPASMS
  16. HALOPERIDOL. [Concomitant]
     Active Substance: HALOPERIDOL
     Indication: ATONIC SEIZURES
     Dosage: UNK
     Route: 065
  17. PHENYTOIN. [Concomitant]
     Active Substance: PHENYTOIN
     Indication: ATONIC SEIZURES
     Dosage: UNK
     Route: 065
  18. ATOMOXETINE. [Concomitant]
     Active Substance: ATOMOXETINE HYDROCHLORIDE
     Indication: INFANTILE SPASMS
  19. TOPIRAMATE. [Concomitant]
     Active Substance: TOPIRAMATE
     Indication: INFANTILE SPASMS
  20. ARIPIPRAZOLE. [Suspect]
     Active Substance: ARIPIPRAZOLE
     Indication: INFANTILE SPASMS
  21. PREGABALIN. [Concomitant]
     Active Substance: PREGABALIN
     Indication: ATONIC SEIZURES
     Dosage: UNK
     Route: 065
  22. SERTRALINE [Concomitant]
     Active Substance: SERTRALINE HYDROCHLORIDE
     Indication: INFANTILE SPASMS
  23. QUETIAPINE FUMARATE. [Suspect]
     Active Substance: QUETIAPINE FUMARATE
     Indication: INFANTILE SPASMS
  24. ARIPIPRAZOLE. [Suspect]
     Active Substance: ARIPIPRAZOLE
     Indication: ATONIC SEIZURES
     Dosage: UNK
     Route: 065
  25. PREGABALIN. [Concomitant]
     Active Substance: PREGABALIN
     Indication: INFANTILE SPASMS
  26. OLANZAPINE. [Concomitant]
     Active Substance: OLANZAPINE
     Indication: ATONIC SEIZURES
     Dosage: UNK
     Route: 065

REACTIONS (2)
  - Hallucination [Recovered/Resolved]
  - Irritability [Recovered/Resolved]
